FAERS Safety Report 10041595 (Version 1)
Quarter: 2014Q1

REPORT INFORMATION
  Report Type: Spontaneous
  Country: SA (occurrence: None)
  Receive Date: 20140325
  Receipt Date: 20140325
  Transmission Date: 20141002
  Serious: Yes (Hospitalization)
  Sender: FDA-Public Use
  Company Number: B0978800A

PATIENT
  Age: 46 Year
  Sex: Male

DRUGS (2)
  1. LAMOTRIGINE [Suspect]
     Indication: SUICIDE ATTEMPT
     Dosage: SINGLE DOSE
     Route: 048
  2. FLUOXETINE [Concomitant]

REACTIONS (7)
  - Suicide attempt [None]
  - Convulsion [None]
  - Coma [None]
  - Muscle spasticity [None]
  - Myoclonus [None]
  - Toxicity to various agents [None]
  - Overdose [None]
